FAERS Safety Report 18960077 (Version 1)
Quarter: 2021Q1

REPORT INFORMATION
  Report Type: Spontaneous
  Country: AU (occurrence: AU)
  Receive Date: 20210302
  Receipt Date: 20210302
  Transmission Date: 20210420
  Serious: Yes (Hospitalization, Other)
  Sender: FDA-Public Use
  Company Number: AU-009507513-2006AUS002390

PATIENT
  Age: 55 Year
  Sex: Male

DRUGS (1)
  1. PEMBROLIZUMAB. [Suspect]
     Active Substance: PEMBROLIZUMAB
     Indication: METASTATIC MALIGNANT MELANOMA
     Dosage: UNK

REACTIONS (5)
  - Diabetes mellitus [Not Recovered/Not Resolved]
  - Immune-mediated hepatitis [Unknown]
  - Pancreatic failure [Unknown]
  - Diabetic ketoacidosis [Unknown]
  - Immune-mediated pancreatitis [Unknown]
